FAERS Safety Report 5534306-X (Version None)
Quarter: 2007Q4

REPORT INFORMATION
  Report Type: 
  Country: None (occurrence: None)
  Receive Date: 20071205
  Receipt Date: 20071126
  Transmission Date: 20080405
  Serious: Yes (Hospitalization)
  Sender: FDA-Public Use
  Company Number: VE-ROCHE-533611

PATIENT
  Age: 54 Year
  Sex: Female
  Weight: 80 kg

DRUGS (2)
  1. XENICAL [Suspect]
     Indication: OBESITY
     Route: 048
     Dates: start: 20071101, end: 20071101
  2. 1 CONCOMITANT DRUG [Concomitant]
     Indication: HEADACHE
     Dosage: DRUG: ERGOTAMIN/ACETHAMINOPHEN/CAPHEIN (DOL)
     Route: 048

REACTIONS (4)
  - ARRHYTHMIA [None]
  - BLINDNESS [None]
  - CHEST PAIN [None]
  - PHOTOSENSITIVITY REACTION [None]
